FAERS Safety Report 20774756 (Version 1)
Quarter: 2022Q2

REPORT INFORMATION
  Report Type: Spontaneous
  Country: US (occurrence: US)
  Receive Date: 20220502
  Receipt Date: 20220502
  Transmission Date: 20220721
  Serious: No
  Sender: FDA-Public Use
  Company Number: US-ABBVIE-21K-163-3982525-00

PATIENT
  Age: 68 Year
  Sex: Female

DRUGS (3)
  1. CREON [Suspect]
     Active Substance: PANCRELIPASE AMYLASE\PANCRELIPASE LIPASE\PANCRELIPASE PROTEASE
     Indication: Pancreatic failure
     Dosage: ON CREON 2500 3 TO 4 FOR SNACK, 6 FOR MAIN MEAL
     Route: 048
     Dates: start: 202010
  2. CREON [Suspect]
     Active Substance: PANCRELIPASE AMYLASE\PANCRELIPASE LIPASE\PANCRELIPASE PROTEASE
     Dosage: ON CREON 2500 3 TO 4 FOR SNACK, 6 FOR MAIN MEAL
     Route: 048
  3. CREON [Suspect]
     Active Substance: PANCRELIPASE AMYLASE\PANCRELIPASE LIPASE\PANCRELIPASE PROTEASE
     Dosage: ON CREON 2500 3 TO 4 FOR SNACK, 6 FOR MAIN MEAL
     Route: 048

REACTIONS (1)
  - Therapeutic product effect incomplete [Unknown]
